FAERS Safety Report 9765087 (Version 2)
Quarter: 2014Q1

REPORT INFORMATION
  Report Type: Spontaneous
  Country: US (occurrence: US)
  Receive Date: 20131217
  Receipt Date: 20140129
  Transmission Date: 20141002
  Serious: No
  Sender: FDA-Public Use
  Company Number: US-PFIZER INC-2013359208

PATIENT
  Age: 77 Year
  Sex: Female
  Weight: 54.42 kg

DRUGS (3)
  1. FLECTOR [Suspect]
     Indication: PAIN
     Dosage: UNK
     Dates: start: 20131028
  2. LISINOPRIL [Concomitant]
     Indication: HYPERTENSION
     Dosage: 10 MG, 1X/DAY
  3. VOLTAREN [Concomitant]
     Dosage: 75 MG, 2X/DAY
     Route: 048

REACTIONS (1)
  - Drug ineffective [Unknown]
